FAERS Safety Report 5274745-8 (Version None)
Quarter: 2007Q1

REPORT INFORMATION
  Report Type: 
  Country: None (occurrence: None)
  Receive Date: 20070320
  Receipt Date: 20070312
  Transmission Date: 20070707
  Serious: Yes (Hospitalization, Other)
  Sender: FDA-Public Use
  Company Number: 163-20785-06070636

PATIENT
  Age: 62 Year
  Sex: Male

DRUGS (21)
  1. THALOMID [Suspect]
     Indication: MULTIPLE MYELOMA
     Dosage: SEE IMAGE
     Route: 048
     Dates: end: 20060525
  2. THALOMID [Suspect]
     Indication: MULTIPLE MYELOMA
     Dosage: SEE IMAGE
     Route: 048
     Dates: start: 20060526, end: 20060625
  3. THALOMID [Suspect]
     Indication: MULTIPLE MYELOMA
     Dosage: SEE IMAGE
     Route: 048
     Dates: start: 20060622, end: 20060713
  4. LIPITOR [Suspect]
     Indication: HYPERLIPIDAEMIA
     Dosage: 80  MG, DAILY
     Dates: end: 20060901
  5. GEMFIBRAZOLE (GEMFIBROZIL) [Suspect]
     Indication: DRUG USE FOR UNKNOWN INDICATION
     Dosage: 600 MG, BID
     Dates: end: 20060901
  6. NIASPAN ER (NICOTINIC ACID) [Concomitant]
  7. ASPIRIN [Concomitant]
  8. PREDNISONE TAB [Concomitant]
  9. PROCHLOROPERAZINE [Concomitant]
  10. ATENOLOL [Concomitant]
  11. COUMADIN [Concomitant]
  12. IRON (IRON) [Concomitant]
  13. TYLENOL #3 (PANADEINE CO) TABLETS [Concomitant]
  14. IMIPRAMINE [Concomitant]
  15. CALCIUM (CALCIUM) [Concomitant]
  16. VITAMIN D [Concomitant]
  17. ALLOPURINOL [Concomitant]
  18. PACKED RED BLOOD CELLS (BLOOD AND RELATED PRODUCTS) [Concomitant]
  19. PLATELETS (PLATELETS) [Concomitant]
  20. PROTAMINE SULFATE [Concomitant]
  21. LOVENOX [Concomitant]

REACTIONS (38)
  - ACTIVATED PARTIAL THROMBOPLASTIN TIME PROLONGED [None]
  - ALANINE AMINOTRANSFERASE INCREASED [None]
  - ASPARTATE AMINOTRANSFERASE INCREASED [None]
  - BARRETT'S OESOPHAGUS [None]
  - BLOOD CHLORIDE DECREASED [None]
  - BLOOD GLUCOSE INCREASED [None]
  - BODY TEMPERATURE DECREASED [None]
  - CATHETER SITE HAEMORRHAGE [None]
  - CONFUSIONAL STATE [None]
  - CONSTIPATION [None]
  - CONTUSION [None]
  - COORDINATION ABNORMAL [None]
  - DYSPEPSIA [None]
  - DYSPHAGIA [None]
  - DYSPNOEA [None]
  - EPIGASTRIC DISCOMFORT [None]
  - GAIT DISTURBANCE [None]
  - GASTRITIS EROSIVE [None]
  - GASTROINTESTINAL HAEMORRHAGE [None]
  - HAEMATOCHEZIA [None]
  - HAEMATOCRIT DECREASED [None]
  - HAEMOGLOBIN DECREASED [None]
  - HAEMORRHOIDS [None]
  - HIATUS HERNIA [None]
  - INTERNATIONAL NORMALISED RATIO INCREASED [None]
  - LEUKOCYTOSIS [None]
  - LIPASE INCREASED [None]
  - PLATELET COUNT DECREASED [None]
  - PROTHROMBIN TIME PROLONGED [None]
  - RENAL FAILURE ACUTE [None]
  - RESPIRATORY RATE INCREASED [None]
  - RHABDOMYOLYSIS [None]
  - SINUS BRADYCARDIA [None]
  - SPEECH DISORDER [None]
  - THINKING ABNORMAL [None]
  - TREMOR [None]
  - VISION BLURRED [None]
  - VOMITING [None]
